FAERS Safety Report 20601022 (Version 1)
Quarter: 2022Q1

REPORT INFORMATION
  Report Type: Spontaneous
  Country: US (occurrence: US)
  Receive Date: 20220316
  Receipt Date: 20220316
  Transmission Date: 20220423
  Serious: No
  Sender: FDA-Public Use
  Company Number: US-GLENMARK PHARMACEUTICALS-2022GMK069874

PATIENT

DRUGS (1)
  1. IMIQUIMOD [Suspect]
     Active Substance: IMIQUIMOD
     Indication: Squamous cell carcinoma
     Dosage: UNK
     Route: 061

REACTIONS (2)
  - Product use in unapproved indication [Unknown]
  - Intercepted product prescribing error [Unknown]
